FAERS Safety Report 8624586-6 (Version None)
Quarter: 2012Q3

REPORT INFORMATION
  Report Type: 
  Country: None (occurrence: None)
  Receive Date: 20120827
  Receipt Date: 20120820
  Transmission Date: 20120928
  Serious: Yes (Hospitalization)
  Sender: FDA-Public Use
  Company Number: US-BAYER-2012-049815

PATIENT
  Age: 59 Year
  Sex: Female
  Weight: 58.957 kg

DRUGS (4)
  1. NEXAVAR [Suspect]
     Dosage: 400 MG, DAILY
     Route: 048
     Dates: start: 20120714
  2. NEXAVAR [Suspect]
     Indication: HEPATIC NEOPLASM MALIGNANT
     Dosage: 400 MG, QD
     Dates: start: 20120509
  3. NEXAVAR [Suspect]
     Dosage: 400 MG, BID
     Dates: start: 20120519
  4. NEXAVAR [Suspect]
     Dosage: 400 MG AM AND 200 MG PM
     Dates: end: 20120711

REACTIONS (17)
  - PAIN [None]
  - RASH [None]
  - BLISTER [None]
  - FATIGUE [None]
  - WEIGHT DECREASED [None]
  - PERIPHERAL COLDNESS [None]
  - HYPERHIDROSIS [None]
  - CONSTIPATION [None]
  - ERYTHEMA [None]
  - DEHYDRATION [None]
  - NAUSEA [None]
  - DIZZINESS [None]
  - VOMITING [None]
  - FEELING HOT [None]
  - GLOSSODYNIA [None]
  - DIARRHOEA [None]
  - COLD SWEAT [None]
